FAERS Safety Report 23331340 (Version 1)
Quarter: 2023Q4

REPORT INFORMATION
  Report Type: Spontaneous
  Country: US (occurrence: None)
  Receive Date: 20231221
  Receipt Date: 20231221
  Transmission Date: 20240110
  Serious: No
  Sender: FDA-Public Use
  Company Number: None

PATIENT
  Age: 75 Year
  Sex: Female
  Weight: 67.5 kg

DRUGS (6)
  1. XARELTO [Suspect]
     Active Substance: RIVAROXABAN
     Indication: Atrial fibrillation
     Dosage: OTHER QUANTITY : 1 TABLET(S);?FREQUENCY : DAILY;?
     Route: 048
  2. XARELTO [Concomitant]
     Active Substance: RIVAROXABAN
  3. LEVOTHYROXINE [Concomitant]
     Active Substance: LEVOTHYROXINE
  4. METOPROLOL [Concomitant]
     Active Substance: METOPROLOL
  5. VITAMIN D [Concomitant]
     Active Substance: VITAMIN D NOS
  6. BIOTIN [Concomitant]
     Active Substance: BIOTIN

REACTIONS (1)
  - Alopecia [None]

NARRATIVE: CASE EVENT DATE: 20201101
